FAERS Safety Report 26208001 (Version 1)
Quarter: 2025Q4

REPORT INFORMATION
  Report Type: Spontaneous
  Country: US (occurrence: None)
  Receive Date: 20251226
  Receipt Date: 20251226
  Transmission Date: 20260118
  Serious: Yes (Hospitalization)
  Sender: FDA-CTU
  Company Number: None

PATIENT
  Age: 47 Year
  Sex: Male
  Weight: 100.35 kg

DRUGS (5)
  1. ZEPBOUND [Suspect]
     Active Substance: TIRZEPATIDE
     Indication: Weight decreased
     Dates: start: 20240401
  2. IVABRADINE [Concomitant]
     Active Substance: IVABRADINE
  3. Electriptan [Concomitant]
  4. Methomizole [Concomitant]
  5. CHLORTHALIDONE [Concomitant]
     Active Substance: CHLORTHALIDONE

REACTIONS (3)
  - Cholelithiasis [None]
  - Cholelithiasis [None]
  - Acute cholecystitis necrotic [None]

NARRATIVE: CASE EVENT DATE: 20250430
